FAERS Safety Report 6249507-5 (Version None)
Quarter: 2009Q2

REPORT INFORMATION
  Report Type: 
  Country: None (occurrence: None)
  Receive Date: 20090629
  Receipt Date: 20090616
  Transmission Date: 20091009
  Serious: Yes (Hospitalization)
  Sender: FDA-Public Use
  Company Number: B0579290A

PATIENT
  Age: 13 Year
  Sex: Female

DRUGS (3)
  1. CERVARIX [Suspect]
     Indication: PROPHYLAXIS
     Dosage: 1INJ SINGLE DOSE
     Dates: start: 20081216, end: 20081216
  2. AMOXICILLIN [Suspect]
     Route: 065
     Dates: start: 20090107
  3. CERVARIX [Concomitant]
     Dosage: 1INJ SINGLE DOSE
     Route: 065
     Dates: start: 20081114, end: 20081114

REACTIONS (5)
  - DERMATITIS ALLERGIC [None]
  - FEELING ABNORMAL [None]
  - LIP SWELLING [None]
  - LOWER RESPIRATORY TRACT INFECTION [None]
  - WHEEZING [None]
